FAERS Safety Report 10545091 (Version 1)
Quarter: 2014Q4

REPORT INFORMATION
  Report Type: Spontaneous
  Country: US (occurrence: US)
  Receive Date: 20141027
  Receipt Date: 20141027
  Transmission Date: 20150529
  Serious: Yes (Other)
  Sender: FDA-Public Use
  Company Number: US-PFIZER INC-2014289062

PATIENT

DRUGS (1)
  1. PRISTIQ EXTENDED RELEASE [Suspect]
     Active Substance: DESVENLAFAXINE SUCCINATE
     Dosage: UNK

REACTIONS (7)
  - Rash generalised [Unknown]
  - Feeling of despair [Unknown]
  - Urticaria [Unknown]
  - Suicidal ideation [Unknown]
  - Product label issue [Unknown]
  - Scar [Unknown]
  - Aggression [Unknown]
